FAERS Safety Report 23500877 (Version 2)
Quarter: 2024Q1

REPORT INFORMATION
  Report Type: Spontaneous
  Country: JP (occurrence: JP)
  Receive Date: 20240208
  Receipt Date: 20240308
  Transmission Date: 20240410
  Serious: Yes (Death)
  Sender: FDA-Public Use
  Company Number: JP-BAYER-2024A021849

PATIENT
  Age: 71 Year
  Sex: Male

DRUGS (2)
  1. VITRAKVI [Suspect]
     Active Substance: LAROTRECTINIB
     Indication: Hepatocellular carcinoma
     Dosage: 100 MG, BID
     Dates: start: 20231219, end: 20240103
  2. VITRAKVI [Suspect]
     Active Substance: LAROTRECTINIB
     Indication: NTRK gene fusion positive

REACTIONS (2)
  - Hepatocellular carcinoma [Fatal]
  - Drug eruption [Recovered/Resolved]

NARRATIVE: CASE EVENT DATE: 20240103
